FAERS Safety Report 20529200 (Version 1)
Quarter: 2022Q1

REPORT INFORMATION
  Report Type: Spontaneous
  Country: US (occurrence: US)
  Receive Date: 20220228
  Receipt Date: 20220228
  Transmission Date: 20220424
  Serious: Yes (Hospitalization, Other)
  Sender: FDA-Public Use
  Company Number: US-Blueprint Medicines Corporation-SP-US-2022-000486

PATIENT
  Age: 30 Year
  Sex: Male

DRUGS (1)
  1. AYVAKIT [Suspect]
     Active Substance: AVAPRITINIB
     Indication: Astrocytoma
     Route: 065
     Dates: start: 202109

REACTIONS (7)
  - Mental status changes [Unknown]
  - Leukopenia [Unknown]
  - Vomiting [Unknown]
  - Speech disorder [Unknown]
  - Dysphagia [Unknown]
  - Infection [Unknown]
  - Off label use [Unknown]
